FAERS Safety Report 20715331 (Version 1)
Quarter: 2022Q2

REPORT INFORMATION
  Report Type: Report from Study
  Country: AU (occurrence: AU)
  Receive Date: 20220415
  Receipt Date: 20220415
  Transmission Date: 20220721
  Serious: Yes (Hospitalization)
  Sender: FDA-Public Use
  Company Number: AU-Merck Healthcare KGaA-9311959

PATIENT
  Age: 74 Year
  Sex: Male
  Weight: 123 kg

DRUGS (11)
  1. AVELUMAB [Suspect]
     Active Substance: AVELUMAB
     Indication: Oesophageal carcinoma
     Dosage: 1230 MG
     Route: 042
     Dates: start: 20220228
  2. AVELUMAB [Suspect]
     Active Substance: AVELUMAB
     Dosage: 1230 MG
     Route: 042
     Dates: start: 20220329
  3. PACLITAXEL [Suspect]
     Active Substance: PACLITAXEL
     Indication: Oesophageal carcinoma
     Dosage: 123 MG
     Dates: start: 20220228
  4. PACLITAXEL [Suspect]
     Active Substance: PACLITAXEL
     Dosage: 123 MG
     Dates: start: 20220329
  5. CARBOPLATIN [Suspect]
     Active Substance: CARBOPLATIN
     Indication: Oesophageal carcinoma
     Dosage: 250 MG
     Dates: start: 20220228
  6. CARBOPLATIN [Suspect]
     Active Substance: CARBOPLATIN
     Dosage: 250 MG
     Dates: start: 20220329
  7. FUROSEMIDE [Concomitant]
     Active Substance: FUROSEMIDE
     Dosage: 40 MG
  8. RIVAROXABAN [Concomitant]
     Active Substance: RIVAROXABAN
     Dosage: 20 MG
  9. BISOPROLOL [Concomitant]
     Active Substance: BISOPROLOL
     Indication: Hypertension
     Dosage: 10 MG
  10. ROSUVASTATIN [Concomitant]
     Active Substance: ROSUVASTATIN
     Indication: Hypertension
     Dosage: 10 MG
  11. CANDESARTAN [Concomitant]
     Active Substance: CANDESARTAN
     Dosage: 16 MG

REACTIONS (1)
  - Dysphagia [Not Recovered/Not Resolved]

NARRATIVE: CASE EVENT DATE: 20220404
